FAERS Safety Report 10258996 (Version 1)
Quarter: 2014Q2

REPORT INFORMATION
  Report Type: Spontaneous
  Country: US (occurrence: US)
  Receive Date: 20140625
  Receipt Date: 20140625
  Transmission Date: 20141212
  Serious: Yes (Hospitalization)
  Sender: FDA-Public Use
  Company Number: US-B.I. PHARMACEUTICALS,INC./RIDGEFIELD-2014-BI-28391BP

PATIENT
  Age: 83 Year
  Sex: Male

DRUGS (19)
  1. SPIRIVA [Suspect]
     Indication: CHRONIC OBSTRUCTIVE PULMONARY DISEASE
     Dosage: 18 MCG
     Route: 048
     Dates: start: 20140623, end: 20140623
  2. SPIRIVA [Suspect]
     Dosage: 18 MCG
     Route: 055
  3. MICROZIDE [Concomitant]
     Route: 048
  4. NIACIN [Concomitant]
     Dosage: 200 MG
     Route: 048
  5. NIZORAL [Concomitant]
     Route: 048
  6. LISINOPRIL [Concomitant]
     Route: 048
  7. SENNA [Concomitant]
     Route: 048
  8. FISH OIL [Concomitant]
     Route: 048
  9. PREDISONE [Concomitant]
     Route: 048
  10. ASMANEX [Concomitant]
     Route: 055
  11. GLIPIZIDE [Concomitant]
     Indication: DIABETES MELLITUS
     Route: 048
  12. ALBUTEROL NEBULIZER [Concomitant]
     Route: 055
  13. ATENOLOL [Concomitant]
     Route: 048
     Dates: start: 2009
  14. CEFUROXINE [Concomitant]
     Route: 048
  15. GABAPENTIN [Concomitant]
     Indication: TRIGEMINAL NEURALGIA
     Route: 048
  16. METFORMIN [Concomitant]
     Route: 048
     Dates: start: 2013
  17. OMEPRAZOLE [Concomitant]
     Route: 048
     Dates: start: 2013
  18. SIMVASTAIN [Concomitant]
     Route: 048
  19. FLONASE [Concomitant]
     Route: 045

REACTIONS (3)
  - Dyspnoea [Recovered/Resolved]
  - Myocardial necrosis marker increased [Recovered/Resolved]
  - Incorrect route of drug administration [Recovered/Resolved]
